FAERS Safety Report 5188030-6 (Version None)
Quarter: 2006Q4

REPORT INFORMATION
  Report Type: 
  Country: None (occurrence: None)
  Receive Date: 20061214
  Receipt Date: 20061214
  Transmission Date: 20070319
  Serious: No
  Sender: FDA-Public Use
  Company Number: None

PATIENT
  Sex: Male

DRUGS (3)
  1. KENALOG [Suspect]
     Indication: DIABETIC RETINOPATHY
     Dosage: 4 MG / 0.1ML 1 TIME INTRAOCULAR
     Route: 031
     Dates: start: 20061207, end: 20061207
  2. KENALOG [Suspect]
     Indication: MACULAR OEDEMA
     Dosage: 4 MG / 0.1ML 1 TIME INTRAOCULAR
     Route: 031
     Dates: start: 20061207, end: 20061207
  3. KENALOG [Suspect]
     Indication: RETINAL NEOVASCULARISATION
     Dosage: 4 MG / 0.1ML 1 TIME INTRAOCULAR
     Route: 031
     Dates: start: 20061207, end: 20061207

REACTIONS (1)
  - VISUAL ACUITY REDUCED [None]
